FAERS Safety Report 10642974 (Version 3)
Quarter: 2015Q1

REPORT INFORMATION
  Report Type: Spontaneous
  Country: US (occurrence: US)
  Receive Date: 20141210
  Receipt Date: 20150211
  Transmission Date: 20150720
  Serious: Yes (Other)
  Sender: FDA-Public Use
  Company Number: US-SA-2014SA168092

PATIENT
  Age: 71 Year
  Sex: Male
  Weight: 68 kg

DRUGS (6)
  1. LISINOPRIL. [Concomitant]
     Active Substance: LISINOPRIL
     Indication: HYPERTENSION
     Dates: start: 20140701
  2. ATORVASTATIN [Concomitant]
     Active Substance: ATORVASTATIN
     Indication: BONE DENSITY ABNORMAL
     Dates: start: 20140701
  3. LANTUS SOLOSTAR [Suspect]
     Active Substance: INSULIN GLARGINE
     Indication: DIABETES MELLITUS
     Route: 065
     Dates: start: 20140601
  4. SOLOSTAR [Concomitant]
     Active Substance: DEVICE
     Dates: start: 201410
  5. LANTUS SOLOSTAR [Suspect]
     Active Substance: INSULIN GLARGINE
     Indication: DIABETES MELLITUS
     Dosage: DOSE:15 UNIT(S)
     Route: 058
     Dates: start: 201410
  6. SOLOSTAR [Concomitant]
     Active Substance: DEVICE

REACTIONS (3)
  - Weight increased [Unknown]
  - Gastric cancer recurrent [Unknown]
  - Drug administration error [Unknown]

NARRATIVE: CASE EVENT DATE: 2014
